FAERS Safety Report 24085114 (Version 1)
Quarter: 2024Q3

REPORT INFORMATION
  Report Type: Spontaneous
  Country: NL (occurrence: NL)
  Receive Date: 20240712
  Receipt Date: 20240712
  Transmission Date: 20241017
  Serious: Yes (Other)
  Sender: GLAXOSMITHKLINE
  Company Number: NL-GLAXOSMITHKLINE-NL2024EME002595

PATIENT

DRUGS (1)
  1. JEMPERLI [Suspect]
     Active Substance: DOSTARLIMAB-GXLY
     Indication: Endometrial cancer
     Dosage: 50 MG/ML 10 ML (500 MG) FIRST DELIVERY: 1 VIAL (FOR 3 WEEKS
     Dates: start: 20240110

REACTIONS (2)
  - Malignant neoplasm progression [Unknown]
  - Off label use [Unknown]
